FAERS Safety Report 18031770 (Version 2)
Quarter: 2020Q4

REPORT INFORMATION
  Report Type: Spontaneous
  Country: US (occurrence: US)
  Receive Date: 20200716
  Receipt Date: 20201116
  Transmission Date: 20210113
  Serious: No
  Sender: FDA-Public Use
  Company Number: US-MYLANLABS-2020M1061600

PATIENT
  Age: 76 Year
  Sex: Female
  Weight: 87.52 kg

DRUGS (3)
  1. AMLODIPINE [Suspect]
     Active Substance: AMLODIPINE BESYLATE
     Indication: PRODUCT USED FOR UNKNOWN INDICATION
     Dosage: UNK
     Route: 065
  2. BOSENTAN. [Suspect]
     Active Substance: BOSENTAN
     Indication: PULMONARY ARTERIAL HYPERTENSION
     Dosage: 62.5 MILLIGRAM, BID
     Route: 048
     Dates: start: 20190613
  3. BOSENTAN. [Suspect]
     Active Substance: BOSENTAN
     Dosage: 62.5 MILLIGRAM

REACTIONS (8)
  - Neck injury [Not Recovered/Not Resolved]
  - Flatulence [Not Recovered/Not Resolved]
  - Dyspnoea exertional [Recovered/Resolved]
  - Hypotension [Recovered/Resolved]
  - Product dose omission issue [Recovered/Resolved]
  - Abdominal distension [Not Recovered/Not Resolved]
  - Weight decreased [Recovered/Resolved]
  - Dizziness [Recovered/Resolved]

NARRATIVE: CASE EVENT DATE: 202001
